FAERS Safety Report 6746711-4 (Version None)
Quarter: 2010Q2

REPORT INFORMATION
  Report Type: 
  Country: None (occurrence: None)
  Receive Date: 20100528
  Receipt Date: 20090424
  Transmission Date: 20101027
  Serious: No
  Sender: FDA-Public Use
  Company Number: A0780586A

PATIENT
  Sex: Female

DRUGS (2)
  1. VENTOLIN [Suspect]
     Route: 055
  2. COFFEE [Concomitant]

REACTIONS (1)
  - DYSPNOEA [None]
